FAERS Safety Report 9203932 (Version 1)
Quarter: 2013Q1

REPORT INFORMATION
  Report Type: Spontaneous
  Country: US (occurrence: None)
  Receive Date: 20120709
  Receipt Date: 20120709
  Transmission Date: 20140127
  Serious: Yes (Disabling, Other)
  Sender: FDA-Public Use
  Company Number: PHHY2011US52970

PATIENT
  Age: 51 Year
  Sex: Male

DRUGS (1)
  1. GLEEVEC (IMATINIB) UNKNOWN [Suspect]
     Route: 048
     Dates: start: 20090527

REACTIONS (10)
  - Eye haemorrhage [None]
  - Retinal haemorrhage [None]
  - Swelling [None]
  - Pain [None]
  - Diarrhoea [None]
  - Muscle spasms [None]
  - Rash [None]
  - Vomiting [None]
  - Nausea [None]
  - Weight increased [None]
